FAERS Safety Report 6791233-8 (Version None)
Quarter: 2010Q2

REPORT INFORMATION
  Report Type: 
  Country: None (occurrence: None)
  Receive Date: 20100624
  Receipt Date: 20100613
  Transmission Date: 20101027
  Serious: Yes (Hospitalization, Other)
  Sender: FDA-Public Use
  Company Number: US-PFIZER INC-2009251162

PATIENT
  Sex: Male
  Weight: 133.79 kg

DRUGS (17)
  1. CHANTIX [Suspect]
     Indication: SMOKING CESSATION THERAPY
     Dosage: 0.5 MG, UNK
     Route: 048
     Dates: start: 20060501, end: 20060601
  2. CHANTIX [Suspect]
     Dosage: 1 MG, UNK
     Route: 048
     Dates: start: 20080201, end: 20080301
  3. DILANTIN [Suspect]
     Indication: CONVULSION
     Dosage: UNK
  4. MEXITIL [Suspect]
     Indication: CONVULSION
     Dosage: UNK
  5. ADVAIR DISKUS 100/50 [Concomitant]
     Indication: ASTHMA
     Dosage: UNK
  6. FLOVENT [Concomitant]
     Indication: ASTHMA
     Dosage: UNK
  7. ALBUTEROL [Concomitant]
     Indication: ASTHMA
     Dosage: UNK
  8. UROXATRAL [Concomitant]
     Indication: RENAL DISORDER
     Dosage: 10 MG, UNK
  9. CYCLOBENZAPRINE [Concomitant]
     Indication: SPINAL FRACTURE
     Dosage: 15 MG, 2X/DAY
  10. TRAMADOL [Concomitant]
     Indication: PAIN
     Dosage: UNK
  11. CYMBALTA [Concomitant]
     Dosage: 6 MG, 1X/DAY
  12. SALMETEROL [Concomitant]
     Dosage: UNK
  13. AMBIEN [Concomitant]
     Indication: SLEEP DISORDER
     Dosage: UNK
  14. RANITIDINE [Concomitant]
     Indication: GASTROOESOPHAGEAL REFLUX DISEASE
     Dosage: 150 MG, 2X/DAY
  15. OXYCONTIN [Concomitant]
     Dosage: 20 MG, UNK
  16. LORAZEPAM [Concomitant]
     Dosage: UNK
  17. ACETYLSALICYLIC ACID [Concomitant]
     Dosage: UNK

REACTIONS (3)
  - CONVULSION [None]
  - DEPRESSION [None]
  - HYPERSENSITIVITY [None]
